FAERS Safety Report 5318011-0 (Version None)
Quarter: 2007Q2

REPORT INFORMATION
  Report Type: 
  Country: None (occurrence: None)
  Receive Date: 20070507
  Receipt Date: 20070426
  Transmission Date: 20071010
  Serious: Yes (Other)
  Sender: FDA-Public Use
  Company Number: CA-ROCHE-495390

PATIENT
  Age: 54 Year
  Sex: Female

DRUGS (5)
  1. XENICAL [Suspect]
     Indication: WEIGHT CONTROL
     Route: 048
     Dates: start: 20060101, end: 20070425
  2. SYNTHROID [Concomitant]
     Indication: HYPOTHYROIDISM
     Route: 048
  3. PARIET [Concomitant]
     Route: 048
  4. LEVOTHYROXINE SODIUM [Concomitant]
     Indication: HYPOMETABOLISM
     Route: 048
     Dates: start: 20070401
  5. MOTILIUM [Concomitant]
     Route: 048

REACTIONS (4)
  - ATRIOVENTRICULAR BLOCK [None]
  - CAROTID ARTERIOSCLEROSIS [None]
  - CORONARY ARTERY OCCLUSION [None]
  - DRUG INEFFECTIVE [None]
